FAERS Safety Report 8471418-5 (Version None)
Quarter: 2012Q2

REPORT INFORMATION
  Report Type: 
  Country: None (occurrence: None)
  Receive Date: 20120627
  Receipt Date: 20120619
  Transmission Date: 20120825
  Serious: Yes (Other)
  Sender: FDA-Public Use
  Company Number: DE-FRI-1000028650

PATIENT
  Sex: Female

DRUGS (6)
  1. FOSFOMYCIN [Suspect]
     Indication: CYSTITIS
     Route: 048
     Dates: start: 20120214, end: 20120214
  2. TIAPRIDEX [Suspect]
     Indication: MENTAL DISORDER
     Dates: start: 20120214
  3. CAPVAL [Concomitant]
  4. VALPROATE SODIUM [Suspect]
     Indication: MAJOR DEPRESSION
     Dosage: 1500 MG
     Dates: start: 19730101
  5. MIRTAZAPINE [Concomitant]
  6. PANZYTRAT [Concomitant]

REACTIONS (4)
  - PALPITATIONS [None]
  - DIARRHOEA HAEMORRHAGIC [None]
  - ARRHYTHMIA [None]
  - ASTHENIA [None]
